FAERS Safety Report 4595373-3 (Version None)
Quarter: 2005Q1

REPORT INFORMATION
  Report Type: 
  Country: None (occurrence: None)
  Receive Date: 20050224
  Receipt Date: 20050214
  Transmission Date: 20050727
  Serious: Yes (Hospitalization)
  Sender: FDA-Public Use
  Company Number: GXKR2005US00595

PATIENT
  Age: 53 Year
  Sex: Female

DRUGS (6)
  1. ISONIAZID [Suspect]
     Indication: PROPHYLAXIS
     Dosage: 300 MG, ORAL
     Route: 048
  2. CALCIUM CARBONATE (CALCIUM CARBONATE) [Concomitant]
  3. VITAMIN D [Concomitant]
  4. LEFLUNOMIDE [Concomitant]
  5. PREDNISONE [Concomitant]
  6. ROFECOXIB [Concomitant]

REACTIONS (1)
  - PANCREATITIS ACUTE [None]
